FAERS Safety Report 5300395-0 (Version None)
Quarter: 2007Q2

REPORT INFORMATION
  Report Type: 
  Country: None (occurrence: None)
  Receive Date: 20070413
  Receipt Date: 20070413
  Transmission Date: 20071010
  Serious: No
  Sender: FDA-Public Use
  Company Number: None

PATIENT

DRUGS (4)
  1. FENTANYL CITRATE [Suspect]
     Indication: SEDATIVE THERAPY
     Dosage: 100 MCG 1 TIME IV SED IV
     Route: 042
     Dates: start: 20070328, end: 20070410
  2. FENTANYL CITRATE [Suspect]
     Indication: TOOTH EXTRACTION
     Dosage: 100 MCG 1 TIME IV SED IV
     Route: 042
     Dates: start: 20070328, end: 20070410
  3. MIDAZOLAM HCL [Suspect]
     Indication: SEDATIVE THERAPY
     Dosage: 10 MG 1 TIME, IV SED IV
     Route: 042
     Dates: start: 20070328, end: 20070410
  4. MIDAZOLAM HCL [Suspect]
     Indication: TOOTH EXTRACTION
     Dosage: 10 MG 1 TIME, IV SED IV
     Route: 042
     Dates: start: 20070328, end: 20070410

REACTIONS (2)
  - DRUG EFFECT DECREASED [None]
  - PROCEDURAL COMPLICATION [None]
